FAERS Safety Report 16561404 (Version 2)
Quarter: 2019Q3

REPORT INFORMATION
  Report Type: Spontaneous
  Country: JP (occurrence: JP)
  Receive Date: 20190711
  Receipt Date: 20190722
  Transmission Date: 20191004
  Serious: Yes (Other)
  Sender: FDA-Public Use
  Company Number: JP-PFIZER INC-2019289178

PATIENT
  Age: 64 Year
  Sex: Male

DRUGS (2)
  1. INFLIXIMAB [Concomitant]
     Active Substance: INFLIXIMAB
     Indication: RHEUMATOID ARTHRITIS
     Dosage: UNK (3-6 MG/KG FOR 7 MONTHS)
  2. METHOTREXATE. [Suspect]
     Active Substance: METHOTREXATE
     Indication: RHEUMATOID ARTHRITIS
     Dosage: UNK, WEEKLY (8-14 MG FOR 2 YEARS)

REACTIONS (3)
  - Lymphoma [Recovering/Resolving]
  - Drug-induced liver injury [Recovered/Resolved]
  - Immunosuppression [Recovered/Resolved]
